FAERS Safety Report 5853403-2 (Version None)
Quarter: 2008Q3

REPORT INFORMATION
  Report Type: 
  Country: None (occurrence: None)
  Receive Date: 20080820
  Receipt Date: 20080807
  Transmission Date: 20090109
  Serious: Yes (Other)
  Sender: FDA-Public Use
  Company Number: DSJ-2008-09470

PATIENT
  Age: 61 Year
  Sex: Male
  Weight: 59 kg

DRUGS (5)
  1. OLMETEC (OLMESARTAN MEDOXMIL) (TABLET) (OLMESARTAN MEDOXOMIL) [Suspect]
     Indication: HYPERTENSION
     Dosage: 20 MG (20 MG, 1 IN 1 D), PER ORAL; 40 MG (20 MG, 2 IN 1 D),. PER ORAL
     Route: 048
     Dates: start: 20060725, end: 20080701
  2. OLMETEC (OLMESARTAN MEDOXMIL) (TABLET) (OLMESARTAN MEDOXOMIL) [Suspect]
     Indication: HYPERTENSION
     Dosage: 20 MG (20 MG, 1 IN 1 D), PER ORAL; 40 MG (20 MG, 2 IN 1 D),. PER ORAL
     Route: 048
     Dates: start: 20080702, end: 20080723
  3. NORVASC [Concomitant]
  4. FLUSTAN [Concomitant]
  5. HALCION [Concomitant]

REACTIONS (3)
  - DYSARTHRIA [None]
  - HYPOAESTHESIA [None]
  - HYPOGLYCAEMIA [None]
